FAERS Safety Report 4547135-0 (Version None)
Quarter: 2005Q1

REPORT INFORMATION
  Report Type: 
  Country: None (occurrence: None)
  Receive Date: 20050107
  Receipt Date: 20041229
  Transmission Date: 20050727
  Serious: Yes (Hospitalization)
  Sender: FDA-Public Use
  Company Number: IT-JNJFOC-20041207584

PATIENT
  Sex: Male

DRUGS (4)
  1. RISPERDAL [Suspect]
     Indication: SCHIZOPHRENIA
     Route: 049
  2. VALPROIC ACID [Suspect]
     Indication: EPILEPSY
     Route: 049
  3. SEROQUEL [Suspect]
     Indication: SCHIZOPHRENIA
     Route: 049
  4. PHENOBARBITAL TAB [Concomitant]
     Route: 049

REACTIONS (1)
  - PANCYTOPENIA [None]
